FAERS Safety Report 7041364-2 (Version None)
Quarter: 2010Q4

REPORT INFORMATION
  Report Type: 
  Country: None (occurrence: None)
  Receive Date: 20101013
  Receipt Date: 20101008
  Transmission Date: 20110411
  Serious: Yes (Other)
  Sender: FDA-Public Use
  Company Number: US-AMGEN-KDL444502

PATIENT
  Sex: Female

DRUGS (1)
  1. ENBREL [Suspect]
     Indication: JUVENILE ARTHRITIS
     Route: 058
     Dates: start: 20100901

REACTIONS (3)
  - CONFLUENT AND RETICULATE PAPILLOMATOSIS [None]
  - DIARRHOEA [None]
  - FAECES DISCOLOURED [None]
